FAERS Safety Report 6309910-1 (Version None)
Quarter: 2009Q3

REPORT INFORMATION
  Report Type: 
  Country: None (occurrence: None)
  Receive Date: 20090814
  Receipt Date: 20090807
  Transmission Date: 20100115
  Serious: Yes (Life-Threatening)
  Sender: FDA-Public Use
  Company Number: A0800974A

PATIENT
  Sex: Male
  Weight: 89.9 kg

DRUGS (3)
  1. LAPATINIB [Suspect]
     Indication: GASTRIC CANCER
     Dosage: 1250MG PER DAY
     Route: 048
     Dates: start: 20090626
  2. CAPECITABINE [Suspect]
     Indication: GASTRIC CANCER
     Dosage: 2000MGM2 PER DAY
     Route: 048
     Dates: start: 20090703
  3. MORPHINE [Concomitant]

REACTIONS (5)
  - ABDOMINAL PAIN [None]
  - ACUTE MYOCARDIAL INFARCTION [None]
  - DYSPNOEA [None]
  - NECK PAIN [None]
  - PAIN IN EXTREMITY [None]
